FAERS Safety Report 20504574 (Version 1)
Quarter: 2022Q1

REPORT INFORMATION
  Report Type: Report from Study
  Country: US (occurrence: US)
  Receive Date: 20220223
  Receipt Date: 20220223
  Transmission Date: 20220424
  Serious: Yes (Hospitalization, Other)
  Sender: FDA-Public Use
  Company Number: US-ABBVIE-22K-163-4285416-00

PATIENT
  Sex: Female

DRUGS (1)
  1. HUMIRA [Suspect]
     Active Substance: ADALIMUMAB
     Indication: Rheumatoid arthritis
     Dosage: PATIENT TAKEN HUMIRA IN ABDOMEN OR THIGH (ROTATE SITES)
     Route: 058

REACTIONS (2)
  - Post procedural complication [Not Recovered/Not Resolved]
  - Surgery [Not Recovered/Not Resolved]
